FAERS Safety Report 11236737 (Version 1)
Quarter: 2015Q3

REPORT INFORMATION
  Report Type: Spontaneous
  Country: US (occurrence: US)
  Receive Date: 20150703
  Receipt Date: 20150703
  Transmission Date: 20151125
  Serious: No
  Sender: FDA-Public Use
  Company Number: US-TAKEDA-2015TUS005884

PATIENT
  Sex: Female

DRUGS (2)
  1. CONTRAVE [Suspect]
     Active Substance: BUPROPION HYDROCHLORIDE\NALTREXONE HYDROCHLORIDE
     Dosage: 1 TTAB QAM AND 1 TAB QPM, FOR 1.5 WEEKS
     Route: 048
     Dates: start: 201504, end: 201504
  2. CONTRAVE [Suspect]
     Active Substance: BUPROPION HYDROCHLORIDE\NALTREXONE HYDROCHLORIDE
     Indication: OVERWEIGHT
     Dosage: 1 DF, QD
     Route: 048
     Dates: start: 201504, end: 201504

REACTIONS (7)
  - Fatigue [Unknown]
  - Pollakiuria [Unknown]
  - Dry mouth [Unknown]
  - Feeling abnormal [Unknown]
  - Nausea [Unknown]
  - Inappropriate schedule of drug administration [Recovered/Resolved]
  - Bedridden [Recovered/Resolved]

NARRATIVE: CASE EVENT DATE: 201504
